FAERS Safety Report 9682028 (Version 2)
Quarter: 2013Q4

REPORT INFORMATION
  Report Type: Spontaneous
  Country: US (occurrence: US)
  Receive Date: 20131111
  Receipt Date: 20131122
  Transmission Date: 20140711
  Serious: Yes (Hospitalization)
  Sender: FDA-Public Use
  Company Number: US-FRI-1000050977

PATIENT
  Age: 77 Year
  Sex: Female
  Weight: 75 kg

DRUGS (10)
  1. LINZESS [Suspect]
     Indication: CONSTIPATION
     Dosage: 290 MCG
     Route: 048
     Dates: start: 20130813, end: 20130813
  2. DOCUSATE SODIUM [Concomitant]
     Dosage: 200 MG
     Route: 048
  3. POTASSIUM [Concomitant]
     Dosage: 8 MEQ
     Route: 048
  4. OMEPRAZOLE [Concomitant]
     Dosage: 20 MG
     Route: 048
  5. ACETAMINOPHEN WITH CODEINE PHOSPHATE [Concomitant]
     Indication: PAIN
     Dosage: 300-30 MG EVERY 4 HOURS AS NEEDED (3X/DAY ON AVERAGE)
     Route: 048
  6. CHOLECALCIFEROL [Concomitant]
     Dosage: 5000 UNITS DAILY
     Route: 048
  7. ASPIRIN [Concomitant]
     Dosage: 81 MG
     Route: 048
  8. CALCIUM CARBONATE [Concomitant]
     Dosage: 1000 MG
     Route: 048
  9. ALENDRONATE SODIUM [Concomitant]
     Dosage: 70 MG (ON SATURDAYS)
     Route: 048
  10. COLESEVELAM [Concomitant]
     Dosage: 3750 MG
     Route: 048

REACTIONS (6)
  - Diarrhoea [Recovered/Resolved]
  - Vomiting [Recovered/Resolved]
  - Diarrhoea haemorrhagic [Recovered/Resolved]
  - Abdominal pain [Recovered/Resolved]
  - Nausea [Recovered/Resolved]
  - Off label use [Recovered/Resolved]
